FAERS Safety Report 12633366 (Version 2)
Quarter: 2016Q3

REPORT INFORMATION
  Report Type: Spontaneous
  Country: US (occurrence: US)
  Receive Date: 20160808
  Receipt Date: 20160808
  Transmission Date: 20161109
  Serious: No
  Sender: FDA-Public Use
  Company Number: US-BEH-2016060689

PATIENT
  Sex: Male
  Weight: 46 kg

DRUGS (16)
  1. EPIPEN [Concomitant]
     Active Substance: EPINEPHRINE
  2. VITAMIN C [Concomitant]
     Active Substance: ASCORBIC ACID
  3. LMX [Concomitant]
     Active Substance: LIDOCAINE
  4. BROVANA [Concomitant]
     Active Substance: ARFORMOTEROL TARTRATE
  5. HIZENTRA [Suspect]
     Active Substance: HUMAN IMMUNOGLOBULIN G
     Indication: IMMUNODEFICIENCY COMMON VARIABLE
     Route: 058
     Dates: start: 20140728
  6. DIPHENHYDRAMINE. [Concomitant]
     Active Substance: DIPHENHYDRAMINE
  7. CO-Q [Concomitant]
  8. ACETAMINOPHEN. [Concomitant]
     Active Substance: ACETAMINOPHEN
  9. PREDNISONE. [Concomitant]
     Active Substance: PREDNISONE
  10. ALBUTEROL. [Concomitant]
     Active Substance: ALBUTEROL
  11. FISH OIL [Concomitant]
     Active Substance: FISH OIL
  12. LORAZEPAM. [Concomitant]
     Active Substance: LORAZEPAM
  13. VITAMIN D [Concomitant]
     Active Substance: CHOLECALCIFEROL
  14. IPRATROPIUM [Concomitant]
     Active Substance: IPRATROPIUM
  15. ASPIRIN. [Concomitant]
     Active Substance: ASPIRIN
  16. LIDOCAINE/PRILOCAINE [Concomitant]
     Active Substance: LIDOCAINE\PRILOCAINE

REACTIONS (1)
  - Rash [Unknown]
